FAERS Safety Report 7497778-X (Version None)
Quarter: 2011Q2

REPORT INFORMATION
  Report Type: 
  Country: None (occurrence: None)
  Receive Date: 20110524
  Receipt Date: 20110509
  Transmission Date: 20111010
  Serious: Yes (Other)
  Sender: FDA-Public Use
  Company Number: US-BAYER-2011-041171

PATIENT
  Sex: Male

DRUGS (1)
  1. ONE-A-DAY MEN'S HEALTH [Suspect]
     Route: 048

REACTIONS (1)
  - NEPHROLITHIASIS [None]
